FAERS Safety Report 8160842-6 (Version None)
Quarter: 2012Q1

REPORT INFORMATION
  Report Type: 
  Country: None (occurrence: None)
  Receive Date: 20120223
  Receipt Date: 20120217
  Transmission Date: 20120608
  Serious: Yes (Death, Other)
  Sender: FDA-Public Use
  Company Number: PHHY2012DE005139

PATIENT
  Sex: Male
  Weight: 139 kg

DRUGS (12)
  1. SIMVASTATIN [Concomitant]
     Indication: HYPERCHOLESTEROLAEMIA
     Dosage: 20 MG/DAY
     Route: 048
     Dates: start: 20080829
  2. BISOPROLOL FUMARATE [Concomitant]
     Indication: HYPERTENSION
     Dosage: 5 MG/DAY
     Route: 048
     Dates: start: 20080829
  3. MARCUMAR [Concomitant]
     Indication: ATRIAL FIBRILLATION
     Dosage: 1 MG/DAY
     Route: 048
     Dates: start: 20080829
  4. MORPHINE SULFATE [Concomitant]
     Indication: OSTEOARTHRITIS
     Dosage: 10 MG/DAY
     Route: 048
     Dates: start: 20081124
  5. RASILEZ [Suspect]
     Dosage: 300 MG/DAY
     Route: 048
     Dates: start: 20081124
  6. XIPAMIDE [Concomitant]
     Dosage: 20 MG/DAY
     Route: 048
     Dates: start: 20080829
  7. ALLOPURINOL [Concomitant]
     Indication: GOUT
     Dosage: 300 MG/DAY
     Route: 048
     Dates: start: 20090307
  8. BISOPROLOL FUMARATE [Concomitant]
     Indication: CORONARY ARTERY DISEASE
  9. RASILEZ [Suspect]
     Indication: HYPERTENSION
     Dosage: 150 MG/DAY
     Route: 048
     Dates: start: 20081027, end: 20081124
  10. SPIRONOLACTONE [Concomitant]
     Indication: CARDIAC FAILURE
     Dosage: 50 MG/DAY
     Route: 048
     Dates: start: 20080829
  11. TORSEMIDE [Concomitant]
     Indication: CARDIAC FAILURE
     Dosage: 10 MG/DAY
     Route: 048
     Dates: start: 20080829
  12. ALLOPURINOL [Concomitant]

REACTIONS (5)
  - MONOCLONAL GAMMOPATHY [None]
  - ACUTE MYOCARDIAL INFARCTION [None]
  - MULTIPLE MYELOMA [None]
  - SUDDEN CARDIAC DEATH [None]
  - CREATININE URINE INCREASED [None]
